FAERS Safety Report 9683127 (Version 1)
Quarter: 2013Q4

REPORT INFORMATION
  Report Type: Spontaneous
  Country: US (occurrence: US)
  Receive Date: 20131112
  Receipt Date: 20131112
  Transmission Date: 20140711
  Serious: No
  Sender: FDA-Public Use
  Company Number: US-PFIZER INC-2013319570

PATIENT
  Sex: Female

DRUGS (3)
  1. DILANTIN [Suspect]
     Indication: CONVULSION
     Dosage: UNK
     Dates: start: 201307
  2. POTASSIUM [Interacting]
     Dosage: 20 MEQ, 2X/DAY
     Route: 048
     Dates: start: 2013, end: 201310
  3. POTASSIUM [Interacting]
     Dosage: 20 MEQ, 1X/DAY
     Route: 048
     Dates: start: 201311

REACTIONS (2)
  - Drug interaction [Unknown]
  - Drug level decreased [Unknown]
